FAERS Safety Report 5178911-1 (Version None)
Quarter: 2006Q4

REPORT INFORMATION
  Report Type: 
  Country: None (occurrence: None)
  Receive Date: 20061208
  Receipt Date: 20061031
  Transmission Date: 20070319
  Serious: Yes (Hospitalization)
  Sender: FDA-Public Use
  Company Number: AND_0482_2006

PATIENT
  Sex: Male

DRUGS (4)
  1. MIRTAZAPINE [Suspect]
     Indication: DEPRESSION
     Dosage: VAR QDAY
  2. MIRTAZAPINE [Suspect]
     Indication: PSYCHOTIC DISORDER
     Dosage: VAR QDAY
  3. RISPERIDONE [Suspect]
     Dosage: VAR QDAY
  4. BIPERIDEN HYDROCHLORIDE TAB [Concomitant]

REACTIONS (6)
  - BLOOD CREATININE INCREASED [None]
  - EMBOLISM [None]
  - PAIN IN EXTREMITY [None]
  - RESPIRATORY DISORDER [None]
  - RHABDOMYOLYSIS [None]
  - THERAPY NON-RESPONDER [None]
